FAERS Safety Report 13660493 (Version 1)
Quarter: 2017Q2

REPORT INFORMATION
  Report Type: Spontaneous
  Country: US (occurrence: US)
  Receive Date: 20170615
  Receipt Date: 20170615
  Transmission Date: 20170830
  Serious: No
  Sender: FDA-Public Use
  Company Number: None

PATIENT
  Age: 25 Year
  Sex: Male
  Weight: 67.5 kg

DRUGS (5)
  1. SOLARAY ONCE DAILY HIGH ENERGY MULTIVITAMIN [Concomitant]
  2. FISH OIL [Concomitant]
     Active Substance: FISH OIL
  3. CLARITIN REDITABS [Suspect]
     Active Substance: LORATADINE
     Indication: MULTIPLE ALLERGIES
     Dosage: ?          QUANTITY:1 TABLET(S);?
     Route: 048
  4. NAC [Concomitant]
  5. FLORA SINUS [Concomitant]

REACTIONS (3)
  - Palpitations [None]
  - Dyspnoea [None]
  - Bundle branch block right [None]

NARRATIVE: CASE EVENT DATE: 20170614
